FAERS Safety Report 8547859-4 (Version None)
Quarter: 2012Q3

REPORT INFORMATION
  Report Type: 
  Country: None (occurrence: None)
  Receive Date: 20120727
  Receipt Date: 20120110
  Transmission Date: 20120928
  Serious: Yes (Other)
  Sender: FDA-Public Use
  Company Number: US-ASTRAZENECA-2011SE58720

PATIENT
  Age: 45 Year
  Sex: Female
  Weight: 81.6 kg

DRUGS (3)
  1. SEROQUEL [Suspect]
     Indication: BIPOLAR I DISORDER
     Route: 048
  2. SEROQUEL [Suspect]
     Route: 048
  3. SEROQUEL [Suspect]
     Route: 048

REACTIONS (12)
  - CONVULSION [None]
  - CHILLS [None]
  - TREMOR [None]
  - BACK DISORDER [None]
  - DRUG DOSE OMISSION [None]
  - INCORRECT DOSE ADMINISTERED [None]
  - DIARRHOEA [None]
  - BIPOLAR DISORDER [None]
  - MALAISE [None]
  - DRUG WITHDRAWAL SYNDROME [None]
  - VOMITING [None]
  - WRONG DRUG ADMINISTERED [None]
